FAERS Safety Report 10632707 (Version 2)
Quarter: 2014Q4

REPORT INFORMATION
  Report Type: Spontaneous
  Country: US (occurrence: US)
  Receive Date: 20141205
  Receipt Date: 20141205
  Transmission Date: 20150529
  Serious: No
  Sender: FDA-Public Use
  Company Number: US200901001638

PATIENT
  Age: 46 Year
  Sex: Female
  Weight: 105.67 kg

DRUGS (10)
  1. UROCIT-K [Concomitant]
     Active Substance: POTASSIUM CITRATE
  2. SYNTHROID [Concomitant]
     Active Substance: LEVOTHYROXINE SODIUM
  3. METFORMIN [Concomitant]
     Active Substance: METFORMIN HYDROCHLORIDE
     Indication: TYPE 2 DIABETES MELLITUS
  4. ECHINACEA [Concomitant]
     Active Substance: ECHINACEA, UNSPECIFIED
     Indication: NASOPHARYNGITIS
     Dates: start: 200901
  5. BYETTA [Suspect]
     Active Substance: EXENATIDE
     Indication: TYPE 2 DIABETES MELLITUS
     Route: 058
     Dates: start: 200606
  6. EXENATIDE 10MCG PEN, DISPOSABLE DEVICE [Concomitant]
     Active Substance: EXENATIDE
  7. MYCOLOG [Concomitant]
     Active Substance: GRAMICIDIN\NEOMYCIN SULFATE\NYSTATIN\TRIAMCINOLONE ACETONIDE
     Indication: VULVOVAGINAL PRURITUS
     Dates: start: 200812
  8. OLEA EUROPAEA [Concomitant]
     Indication: NASOPHARYNGITIS
     Dates: start: 200901
  9. EXENATIDE 10MCG PEN, DISPOSABLE DEVICE [Concomitant]
     Active Substance: EXENATIDE
  10. VITAMIN C [Concomitant]
     Active Substance: ASCORBIC ACID
     Indication: NASOPHARYNGITIS
     Dates: start: 200901

REACTIONS (6)
  - Vulvovaginal pruritus [Recovered/Resolved]
  - Nasopharyngitis [Recovering/Resolving]
  - Medication error [Unknown]
  - Nephrolithiasis [Unknown]
  - Sinusitis [Recovering/Resolving]
  - Upper respiratory tract infection [Recovering/Resolving]

NARRATIVE: CASE EVENT DATE: 200811
